FAERS Safety Report 18259618 (Version 1)
Quarter: 2020Q3

REPORT INFORMATION
  Report Type: Report from Study
  Country: None (occurrence: US)
  Receive Date: 20200912
  Receipt Date: 20200912
  Transmission Date: 20201103
  Serious: Yes (Other)
  Sender: FDA-Public Use
  Company Number: US-ABBVIE-20K-163-3560202-00

PATIENT
  Sex: Male

DRUGS (1)
  1. SKYRIZI [Suspect]
     Active Substance: RISANKIZUMAB-RZAA
     Indication: PSORIASIS
     Route: 058

REACTIONS (5)
  - Cerebrovascular accident [Recovered/Resolved]
  - Dementia [Recovered/Resolved]
  - Drug ineffective [Recovered/Resolved]
  - Dementia Alzheimer^s type [Recovered/Resolved]
  - Psoriasis [Recovered/Resolved]
